FAERS Safety Report 6781917-X (Version None)
Quarter: 2010Q2

REPORT INFORMATION
  Report Type: 
  Country: None (occurrence: None)
  Receive Date: 20100618
  Receipt Date: 20100618
  Transmission Date: 20101027
  Serious: No
  Sender: FDA-Public Use
  Company Number: None

PATIENT

DRUGS (2)
  1. LIPITOR [Suspect]
     Dates: start: 19970701, end: 20040101
  2. LIPITOR [Suspect]
     Dates: start: 20040101, end: 20060401

REACTIONS (19)
  - ASTHENIA [None]
  - BALANCE DISORDER [None]
  - CARPAL TUNNEL SYNDROME [None]
  - DIPLOPIA [None]
  - EYE PAIN [None]
  - FEELING ABNORMAL [None]
  - GAIT DISTURBANCE [None]
  - GASTROENTERITIS [None]
  - HYPOAESTHESIA [None]
  - MUSCLE ATROPHY [None]
  - MUSCLE SPASMS [None]
  - MUSCULOSKELETAL PAIN [None]
  - MYALGIA [None]
  - NEURITIS [None]
  - OPTIC NERVE DISORDER [None]
  - PAIN IN EXTREMITY [None]
  - PHOBIA [None]
  - RADICULITIS [None]
  - VISUAL FIELD DEFECT [None]
